FAERS Safety Report 18735713 (Version 1)
Quarter: 2021Q1

REPORT INFORMATION
  Report Type: Spontaneous
  Country: CZ (occurrence: CZ)
  Receive Date: 20210113
  Receipt Date: 20210113
  Transmission Date: 20210419
  Serious: Yes (Hospitalization)
  Sender: FDA-Public Use
  Company Number: CZ-MYLANLABS-2021M1001106

PATIENT
  Age: 45 Year

DRUGS (7)
  1. LAMOTRIGINE. [Suspect]
     Active Substance: LAMOTRIGINE
     Indication: PRODUCT USED FOR UNKNOWN INDICATION
     Dosage: 400 MILLIGRAM, QD
  2. VALPROATE [Concomitant]
     Active Substance: VALPROIC ACID
     Indication: WEIGHT INCREASED
     Dosage: UNK
  3. LEVETIRACETAM. [Suspect]
     Active Substance: LEVETIRACETAM
     Indication: EPILEPSY
     Dosage: UNK
  4. CARBAMAZEPINE. [Concomitant]
     Active Substance: CARBAMAZEPINE
     Indication: ERECTILE DYSFUNCTION
     Dosage: UNK
  5. BRIVARACETAM [Concomitant]
     Active Substance: BRIVARACETAM
     Indication: PRODUCT USED FOR UNKNOWN INDICATION
     Dosage: 25 MILLIGRAM, BID,25?0?25 MG
  6. BRIVARACETAM [Concomitant]
     Active Substance: BRIVARACETAM
     Dosage: 100 MG DAILY
  7. TOPIRAMATE. [Suspect]
     Active Substance: TOPIRAMATE
     Indication: EPILEPSY
     Dosage: 200 MILLIGRAM, QD
     Route: 065

REACTIONS (5)
  - Condition aggravated [Unknown]
  - Thinking abnormal [Unknown]
  - Psychogenic seizure [Unknown]
  - Drug intolerance [Unknown]
  - Psychiatric symptom [Unknown]
